FAERS Safety Report 4470383-5 (Version None)
Quarter: 2004Q3

REPORT INFORMATION
  Report Type: 
  Country: None (occurrence: None)
  Receive Date: 20040910
  Receipt Date: 20040610
  Transmission Date: 20050211
  Serious: Yes (Other)
  Sender: FDA-Public Use
  Company Number: 2004-00058

PATIENT
  Age: 74 Year
  Sex: Male
  Weight: 66.7 kg

DRUGS (3)
  1. VELCADE [Suspect]
     Indication: MULTIPLE MYELOMA
     Dosage: 1.30 MG/M2, 2/WEEK, INTRAVENOUS
     Route: 042
     Dates: start: 20040301, end: 20040401
  2. PROCRIT [Concomitant]
  3. ACYCLOVIR [Concomitant]

REACTIONS (1)
  - NEUROPATHY PERIPHERAL [None]
